FAERS Safety Report 23505031 (Version 1)
Quarter: 2024Q1

REPORT INFORMATION
  Report Type: Spontaneous
  Country: DE (occurrence: DE)
  Receive Date: 20240209
  Receipt Date: 20240209
  Transmission Date: 20240410
  Serious: No
  Sender: FDA-Public Use
  Company Number: None

PATIENT
  Sex: Male
  Weight: 79 kg

DRUGS (7)
  1. ATORVASTATIN CALCIUM [Suspect]
     Active Substance: ATORVASTATIN CALCIUM
     Indication: Hyperlipidaemia
     Dosage: 1 DOSAGE FORM, QD (EVERY 1 DAY)
     Route: 048
  2. ROSUVASTATIN [Suspect]
     Active Substance: ROSUVASTATIN
     Indication: Hyperlipidaemia
     Dosage: 1 DOSAGE FORM, QD (EVERY 1 DAY)
     Route: 048
  3. EZETIMIBE [Suspect]
     Active Substance: EZETIMIBE
     Indication: Hyperlipidaemia
     Dosage: 10 MILLIGRAM, QD (EVERY 1 DAY)
     Route: 048
  4. FLUVASTATIN [Suspect]
     Active Substance: FLUVASTATIN SODIUM
     Indication: Hyperlipidaemia
     Dosage: 1 DOSAGE FORM, QD (EVERY 1 DAY)
     Route: 048
  5. BEMPEDOIC ACID [Suspect]
     Active Substance: BEMPEDOIC ACID
     Indication: Hyperlipidaemia
     Dosage: 180 MILLIGRAM, QD (EVERY 1 DAY)
     Route: 048
  6. PRAVASTATIN [Suspect]
     Active Substance: PRAVASTATIN
     Indication: Hyperlipidaemia
     Dosage: 1 DOSAGE FORM, QD (EVERY 1 DAY)
     Route: 048
  7. SIMVASTATIN [Suspect]
     Active Substance: SIMVASTATIN
     Indication: Hyperlipidaemia
     Dosage: 1 DOSAGE FORM, QD (EVERY 1 DAY)
     Route: 048

REACTIONS (4)
  - Musculoskeletal discomfort [Recovered/Resolved]
  - Muscle discomfort [Recovered/Resolved]
  - Myalgia [Recovered/Resolved]
  - Arthralgia [Recovered/Resolved]
